FAERS Safety Report 22862132 (Version 4)
Quarter: 2023Q4

REPORT INFORMATION
  Report Type: Report from Study
  Country: TR (occurrence: TR)
  Receive Date: 20230824
  Receipt Date: 20231025
  Transmission Date: 20240110
  Serious: Yes (Death, Life-Threatening, Hospitalization, Other)
  Sender: FDA-Public Use
  Company Number: TR-PFIZER INC-202300069830

PATIENT
  Age: 65 Year
  Sex: Female
  Weight: 88 kg

DRUGS (9)
  1. ELRANATAMAB [Suspect]
     Active Substance: ELRANATAMAB
     Indication: Plasma cell myeloma
     Dosage: 12 MG, WEEKLY
     Route: 058
     Dates: start: 20230104, end: 20230104
  2. ELRANATAMAB [Suspect]
     Active Substance: ELRANATAMAB
     Dosage: 32 MG, WEEKLY
     Route: 058
     Dates: start: 20230107, end: 20230107
  3. ELRANATAMAB [Suspect]
     Active Substance: ELRANATAMAB
     Dosage: 76 MG, WEEKLY
     Route: 058
     Dates: start: 20230111, end: 20230111
  4. ELRANATAMAB [Suspect]
     Active Substance: ELRANATAMAB
     Dosage: 76 MG, WEEKLY
     Route: 058
     Dates: start: 20230118, end: 20230118
  5. ELRANATAMAB [Suspect]
     Active Substance: ELRANATAMAB
     Dosage: 76 MG, WEEKLY
     Route: 058
     Dates: start: 20230123, end: 20230123
  6. ELRANATAMAB [Suspect]
     Active Substance: ELRANATAMAB
     Dosage: 76 MG, WEEKLY
     Route: 058
     Dates: end: 20230201
  7. DARATUMUMAB [Suspect]
     Active Substance: DARATUMUMAB
     Indication: Plasma cell myeloma
     Dosage: 1800 MG, WEEKLY
     Route: 058
     Dates: start: 20230118, end: 20230118
  8. DARATUMUMAB [Suspect]
     Active Substance: DARATUMUMAB
     Dosage: 1800.0 MG, ONCE
     Route: 058
     Dates: start: 20230123, end: 20230123
  9. DARATUMUMAB [Suspect]
     Active Substance: DARATUMUMAB
     Dosage: 1800 MG, ONCE
     Route: 058
     Dates: start: 20230201, end: 20230201

REACTIONS (1)
  - Pneumonia fungal [Fatal]

NARRATIVE: CASE EVENT DATE: 20230206
